FAERS Safety Report 7326564-6 (Version None)
Quarter: 2011Q1

REPORT INFORMATION
  Report Type: 
  Country: None (occurrence: None)
  Receive Date: 20110302
  Receipt Date: 20110223
  Transmission Date: 20110831
  Serious: Yes (Other)
  Sender: FDA-Public Use
  Company Number: JP-MERCK-1102USA03571

PATIENT
  Age: 85 Year
  Sex: Female

DRUGS (7)
  1. ASPARA CA [Concomitant]
     Route: 048
  2. MYSLEE [Concomitant]
     Route: 048
  3. DIOVAN [Concomitant]
     Route: 048
  4. TOWARAT [Concomitant]
     Route: 048
  5. EPADEL [Concomitant]
     Route: 048
  6. FOSAMAX [Suspect]
     Indication: OSTEOPOROSIS
     Route: 048
  7. CALFINA [Concomitant]
     Route: 048

REACTIONS (1)
  - OSTEOMYELITIS [None]
